FAERS Safety Report 5150616-2 (Version None)
Quarter: 2006Q4

REPORT INFORMATION
  Report Type: 
  Country: None (occurrence: None)
  Receive Date: 20061114
  Receipt Date: 20061103
  Transmission Date: 20070319
  Serious: Yes (Disabling, Other)
  Sender: FDA-Public Use
  Company Number: 2006SE06014

PATIENT
  Age: 18915 Day
  Sex: Male
  Weight: 69 kg

DRUGS (1)
  1. CRESTOR [Suspect]
     Indication: HYPERCHOLESTEROLAEMIA
     Route: 048
     Dates: start: 20060925, end: 20061101

REACTIONS (3)
  - AMNESIA [None]
  - TREMOR [None]
  - VERTIGO [None]
